FAERS Safety Report 4533571-5 (Version None)
Quarter: 2004Q4

REPORT INFORMATION
  Report Type: 
  Country: None (occurrence: None)
  Receive Date: 20041221
  Receipt Date: 20041125
  Transmission Date: 20050328
  Serious: Yes (Other)
  Sender: FDA-Public Use
  Company Number: PHBS2004FI16044

PATIENT
  Age: 75 Year
  Sex: Male

DRUGS (1)
  1. EXELON [Suspect]
     Route: 048

REACTIONS (4)
  - BARRETT'S OESOPHAGUS [None]
  - HAEMOGLOBIN DECREASED [None]
  - OESOPHAGITIS ULCERATIVE [None]
  - ULCER HAEMORRHAGE [None]
